FAERS Safety Report 19034559 (Version 1)
Quarter: 2021Q1

REPORT INFORMATION
  Report Type: Other
  Country: JP (occurrence: JP)
  Receive Date: 20210320
  Receipt Date: 20210320
  Transmission Date: 20210420
  Serious: Yes (Hospitalization, Other)
  Sender: FDA-Public Use
  Company Number: JP-INNOGENIX, LLC-2108238

PATIENT
  Age: 26 Year
  Sex: Female

DRUGS (3)
  1. HALOPERIDOL. [Suspect]
     Active Substance: HALOPERIDOL
     Indication: SCHIZOPHRENIA
     Route: 065
  2. QUETIAPINE. [Concomitant]
     Active Substance: QUETIAPINE
     Route: 065
  3. PEROSPIRONE [Concomitant]
     Active Substance: PEROSPIRONE
     Route: 065

REACTIONS (1)
  - Drug ineffective [Unknown]
